FAERS Safety Report 19933719 (Version 1)
Quarter: 2021Q4

REPORT INFORMATION
  Report Type: Spontaneous
  Country: US (occurrence: US)
  Receive Date: 20211008
  Receipt Date: 20211008
  Transmission Date: 20220303
  Serious: No
  Sender: FDA-Public Use
  Company Number: US-PFIZER INC-2021884874

PATIENT
  Age: 61 Year
  Sex: Female
  Weight: 92.52 kg

DRUGS (1)
  1. SUTENT [Suspect]
     Active Substance: SUNITINIB MALATE
     Dosage: 37.5 MG, DAILY

REACTIONS (3)
  - Drug hypersensitivity [Not Recovered/Not Resolved]
  - Eye infection [Not Recovered/Not Resolved]
  - Scab [Not Recovered/Not Resolved]
